FAERS Safety Report 5344358-8 (Version None)
Quarter: 2007Q2

REPORT INFORMATION
  Report Type: 
  Country: None (occurrence: None)
  Receive Date: 20070604
  Receipt Date: 20070524
  Transmission Date: 20071010
  Serious: Yes (Hospitalization)
  Sender: FDA-Public Use
  Company Number: US-KINGPHARMUSA00001-K200700635

PATIENT

DRUGS (6)
  1. ALTACE [Suspect]
     Dosage: 1U, QD
     Route: 048
  2. TAREG [Suspect]
     Dosage: 80 MG, QD
     Route: 048
  3. RIVOTRIL [Concomitant]
     Dosage: 3 U, UNK
     Route: 048
  4. MIXTARD  /00634701/ [Concomitant]
     Route: 058
  5. BUFLOMEDIL [Concomitant]
     Dosage: 600 MG, UNK
     Route: 048
  6. PLAVIX [Concomitant]
     Dosage: 75 MG, UNK
     Route: 048

REACTIONS (9)
  - ANOREXIA [None]
  - ASTHENIA [None]
  - BLOOD CREATININE INCREASED [None]
  - BLOOD UREA INCREASED [None]
  - DEHYDRATION [None]
  - DRUG INTERACTION [None]
  - GASTROENTERITIS [None]
  - HYPERKALAEMIA [None]
  - RENAL FAILURE ACUTE [None]
